FAERS Safety Report 6254536-1 (Version None)
Quarter: 2009Q3

REPORT INFORMATION
  Report Type: 
  Country: None (occurrence: None)
  Receive Date: 20090702
  Receipt Date: 20090619
  Transmission Date: 20100115
  Serious: Yes (Hospitalization, Other)
  Sender: FDA-Public Use
  Company Number: US-PFIZER INC-2009193986

PATIENT
  Age: 72 Year

DRUGS (2)
  1. LYRICA [Suspect]
     Indication: NEURALGIA
     Dosage: UNK
     Dates: start: 20080601, end: 20080801
  2. LYRICA [Suspect]
     Indication: SLEEP DISORDER

REACTIONS (4)
  - BURNS THIRD DEGREE [None]
  - DEVICE BREAKAGE [None]
  - DRUG INEFFECTIVE [None]
  - FALL [None]
